FAERS Safety Report 25976881 (Version 1)
Quarter: 2025Q4

REPORT INFORMATION
  Report Type: Report from Study
  Country: GB (occurrence: GB)
  Receive Date: 20251029
  Receipt Date: 20251029
  Transmission Date: 20260118
  Serious: Yes (Other)
  Sender: ABBVIE
  Company Number: GB-ABBVIE-6519909

PATIENT
  Age: 27 Year
  Sex: Female
  Weight: 113 kg

DRUGS (7)
  1. ATOGEPANT [Suspect]
     Active Substance: ATOGEPANT
     Indication: Migraine without aura
     Route: 048
     Dates: start: 20250728
  2. TOPIRAMATE [Concomitant]
     Active Substance: TOPIRAMATE
     Indication: Headache
     Route: 048
     Dates: start: 20210510
  3. VENLAFAXINE [Concomitant]
     Active Substance: VENLAFAXINE HYDROCHLORIDE
     Indication: Depression
     Route: 048
     Dates: start: 20250702
  4. CHOLECALCIFEROL [Concomitant]
     Active Substance: CHOLECALCIFEROL
     Indication: Vitamin D
     Dosage: 1000 U
     Route: 048
     Dates: start: 20250523
  5. PREGABALIN [Concomitant]
     Active Substance: PREGABALIN
     Indication: Headache
     Route: 048
     Dates: start: 20250702
  6. NAPROXEN [Concomitant]
     Active Substance: NAPROXEN
     Indication: Dystonia
     Route: 048
     Dates: start: 20210317
  7. ALBUTEROL [Concomitant]
     Active Substance: ALBUTEROL
     Indication: Asthma
     Dosage: TIME INTERVAL: AS NECESSARY
     Route: 048
     Dates: start: 20200101

REACTIONS (1)
  - Blindness [Not Recovered/Not Resolved]

NARRATIVE: CASE EVENT DATE: 20251023
